FAERS Safety Report 16944606 (Version 1)
Quarter: 2019Q4

REPORT INFORMATION
  Report Type: Spontaneous
  Country: US (occurrence: US)
  Receive Date: 20191022
  Receipt Date: 20191022
  Transmission Date: 20200122
  Serious: No
  Sender: FDA-Public Use
  Company Number: US-WALMART PREMIER BRANDS OF AMERICA-2075909

PATIENT
  Age: 57 Year
  Sex: Male

DRUGS (2)
  1. ANTI ITCH (DIPHENHYDRAMINE HYDROCHLORIDE\ZINC ACETATE) [Suspect]
     Active Substance: DIPHENHYDRAMINE HYDROCHLORIDE\ZINC ACETATE
     Indication: DERMATITIS CONTACT
     Route: 003
     Dates: start: 20190910, end: 20190910
  2. LIDOCAINE. [Suspect]
     Active Substance: LIDOCAINE

REACTIONS (1)
  - Chemical burn [Recovering/Resolving]

NARRATIVE: CASE EVENT DATE: 20190910
